FAERS Safety Report 12171410 (Version 2)
Quarter: 2016Q3

REPORT INFORMATION
  Report Type: Spontaneous
  Country: US (occurrence: US)
  Receive Date: 20160311
  Receipt Date: 20160718
  Transmission Date: 20161109
  Serious: Yes (Other)
  Sender: FDA-Public Use
  Company Number: US-TEVA-642279ACC

PATIENT
  Age: 23 Year
  Sex: Female
  Weight: 87.17 kg

DRUGS (2)
  1. PARAGARD T 380A [Suspect]
     Active Substance: COPPER
     Indication: CONTRACEPTION
     Dates: start: 20160121, end: 20160229
  2. PARAGARD T 380A [Suspect]
     Active Substance: COPPER
     Dates: start: 20160415

REACTIONS (3)
  - Pain [Unknown]
  - Device dislocation [Recovered/Resolved]
  - Muscle spasms [Recovered/Resolved]

NARRATIVE: CASE EVENT DATE: 20160229
